FAERS Safety Report 7460313-6 (Version None)
Quarter: 2011Q2

REPORT INFORMATION
  Report Type: 
  Country: None (occurrence: None)
  Receive Date: 20110505
  Receipt Date: 20110429
  Transmission Date: 20111010
  Serious: Yes (Hospitalization)
  Sender: FDA-Public Use
  Company Number: A0840833A

PATIENT
  Age: 56 Year
  Sex: Female
  Weight: 195 kg

DRUGS (11)
  1. MICRO-K [Concomitant]
  2. DIOVAN [Concomitant]
  3. PRINZIDE [Concomitant]
  4. GLUCOVANCE [Concomitant]
  5. LIPITOR [Concomitant]
  6. LASIX [Concomitant]
  7. NORVASC [Concomitant]
  8. ROSIGLITAZONE MALEATE [Suspect]
     Route: 065
  9. ARIMIDEX [Concomitant]
  10. CRESTOR [Concomitant]
  11. NEURONTIN [Concomitant]

REACTIONS (7)
  - MICTURITION DISORDER [None]
  - GENERALISED OEDEMA [None]
  - DYSPNOEA [None]
  - WEIGHT INCREASED [None]
  - SWELLING [None]
  - WHEEZING [None]
  - FLUID RETENTION [None]
